FAERS Safety Report 6554586-1 (Version None)
Quarter: 2010Q1

REPORT INFORMATION
  Report Type: 
  Country: None (occurrence: None)
  Receive Date: 20100127
  Receipt Date: 20100114
  Transmission Date: 20100710
  Serious: Yes (Hospitalization)
  Sender: FDA-Public Use
  Company Number: BR-ELI_LILLY_AND_COMPANY-BR200911003389

PATIENT
  Age: 60 Year
  Sex: Female

DRUGS (4)
  1. HUMULIN N [Suspect]
     Indication: DIABETES MELLITUS
     Dosage: 24 IU, EACH MORNING
     Route: 065
     Dates: start: 20040801
  2. HUMULIN N [Suspect]
     Dosage: 34 IU, OTHER
     Route: 065
     Dates: start: 20040801
  3. HUMULIN N [Suspect]
     Dosage: 24 IU, EACH EVENING
     Route: 065
     Dates: start: 20040801
  4. NOVOLIN [Concomitant]
     Dosage: UNK, UNKNOWN
     Route: 065

REACTIONS (7)
  - BLOOD GLUCOSE FLUCTUATION [None]
  - BLOOD GLUCOSE INCREASED [None]
  - DRUG INEFFECTIVE [None]
  - INJECTION SITE HAEMATOMA [None]
  - INJECTION SITE INFLAMMATION [None]
  - INJECTION SITE PAIN [None]
  - RESPIRATORY TRACT INFECTION [None]
